FAERS Safety Report 20146439 (Version 1)
Quarter: 2021Q4

REPORT INFORMATION
  Report Type: Spontaneous
  Country: US (occurrence: None)
  Receive Date: 20211203
  Receipt Date: 20211203
  Transmission Date: 20220303
  Serious: Yes (Hospitalization)
  Sender: FDA-Public Use
  Company Number: None

PATIENT
  Sex: Female

DRUGS (5)
  1. ORENCIA [Suspect]
     Active Substance: ABATACEPT
     Indication: Rheumatoid arthritis
     Dosage: OTHER FREQUENCY : WEEKLY;?
     Route: 058
     Dates: start: 20210916
  2. MAGNESIUM-OX [Concomitant]
  3. MULTIVITAMIN TAB MINERAL [Concomitant]
  4. FERROUS SULFATE [Concomitant]
     Active Substance: FERROUS SULFATE
  5. FISH OIL [Concomitant]
     Active Substance: FISH OIL

REACTIONS (1)
  - Gallbladder operation [None]
